FAERS Safety Report 20773667 (Version 2)
Quarter: 2022Q2

REPORT INFORMATION
  Report Type: Spontaneous
  Country: US (occurrence: US)
  Receive Date: 20220502
  Receipt Date: 20220531
  Transmission Date: 20220721
  Serious: Yes (Other)
  Sender: FDA-Public Use
  Company Number: US-BAYER-2022A063238

PATIENT
  Age: 23 Year
  Sex: Female
  Weight: 55.329 kg

DRUGS (1)
  1. MIRENA [Suspect]
     Active Substance: LEVONORGESTREL
     Dosage: 20?G/DAY
     Route: 015
     Dates: start: 20201218, end: 20220510

REACTIONS (4)
  - Ectopic pregnancy with contraceptive device [None]
  - Drug ineffective [None]
  - Vaginal haemorrhage [None]
  - Abdominal pain lower [None]
